FAERS Safety Report 8584552-6 (Version None)
Quarter: 2012Q3

REPORT INFORMATION
  Report Type: 
  Country: None (occurrence: None)
  Receive Date: 20120730
  Receipt Date: 20120712
  Transmission Date: 20120928
  Serious: Yes (Hospitalization)
  Sender: FDA-Public Use
  Company Number: TPA2012A04593

PATIENT
  Sex: Male

DRUGS (3)
  1. COLCHICINE [Concomitant]
  2. ULORIC [Suspect]
     Dates: start: 20110701
  3. SOLU-MEDROL [Concomitant]

REACTIONS (3)
  - NEPHRITIS ALLERGIC [None]
  - RENAL FAILURE ACUTE [None]
  - TUBULOINTERSTITIAL NEPHRITIS [None]
